FAERS Safety Report 11215457 (Version 1)
Quarter: 2015Q2

REPORT INFORMATION
  Report Type: Spontaneous
  Country: TR (occurrence: None)
  Receive Date: 20150622
  Receipt Date: 20150622
  Transmission Date: 20150821
  Serious: Yes (Hospitalization)
  Sender: FDA-Public Use
  Company Number: 2015JUB00185

PATIENT
  Age: 9 Year
  Sex: Male

DRUGS (2)
  1. RISPERIDONE (RISPERIDONE) UNKNOWN [Suspect]
     Active Substance: RISPERIDONE
     Indication: CONDUCT DISORDER
  2. METHYLPHENIDATE (METHYLPHENIDATE) UNKNOWN [Suspect]
     Active Substance: METHYLPHENIDATE
     Indication: ATTENTION DEFICIT/HYPERACTIVITY DISORDER

REACTIONS (2)
  - Dystonia [None]
  - Drug interaction [None]
